FAERS Safety Report 9798655 (Version 2)
Quarter: 2015Q3

REPORT INFORMATION
  Report Type: Spontaneous
  Country: US (occurrence: US)
  Receive Date: 20140106
  Receipt Date: 20150806
  Transmission Date: 20151125
  Serious: No
  Sender: FDA-Public Use
  Company Number: US-GILEAD-2010-0029619

PATIENT
  Age: 70 Year
  Sex: Female
  Weight: 67.13 kg

DRUGS (10)
  1. LETAIRIS [Suspect]
     Active Substance: AMBRISENTAN
     Indication: PULMONARY ARTERIAL HYPERTENSION
     Route: 048
     Dates: start: 20081003
  2. SPIRONOLACTONE. [Concomitant]
     Active Substance: SPIRONOLACTONE
  3. OYSTER SHELL CAL +D [Concomitant]
  4. ADULT LOW DOSE ASPIRIN [Concomitant]
     Active Substance: ASPIRIN
  5. A-Z MULTIVITAMIN [Concomitant]
  6. VITAMIN D [Concomitant]
     Active Substance: CHOLECALCIFEROL
  7. GLUCOSAMINE [Concomitant]
     Active Substance: GLUCOSAMINE
  8. FISH OIL [Concomitant]
     Active Substance: FISH OIL
  9. LASIX [Concomitant]
     Active Substance: FUROSEMIDE
  10. SYNTHROID [Concomitant]
     Active Substance: LEVOTHYROXINE SODIUM

REACTIONS (1)
  - Fatigue [Unknown]
